FAERS Safety Report 9180698 (Version 1)
Quarter: 2013Q1

REPORT INFORMATION
  Report Type: Spontaneous
  Country: US (occurrence: None)
  Receive Date: 20130320
  Receipt Date: 20130320
  Transmission Date: 20140127
  Serious: Yes (Hospitalization)
  Sender: FDA-Public Use
  Company Number: None

PATIENT
  Age: 62 Year
  Sex: Male

DRUGS (1)
  1. DEGARELIX (FIRMAGON) [Suspect]
     Indication: PROSTATE CANCER
     Dosage: THERAPY DATES 12/28/2012 TO 12/28/2012), (01/28/2013), (30 MG 1X/MONTH SUBCUTANEOUS)
     Route: 058
     Dates: start: 20121220, end: 20121220

REACTIONS (1)
  - Nephropathy [None]
